FAERS Safety Report 18849742 (Version 1)
Quarter: 2021Q1

REPORT INFORMATION
  Report Type: Spontaneous
  Country: US (occurrence: US)
  Receive Date: 20210204
  Receipt Date: 20210204
  Transmission Date: 20210420
  Serious: No
  Sender: FDA-Public Use
  Company Number: US-009507513-2101USA004097

PATIENT
  Sex: Male

DRUGS (1)
  1. BELSOMRA [Suspect]
     Active Substance: SUVOREXANT
     Dosage: UNK
     Route: 048
     Dates: start: 20210103

REACTIONS (3)
  - Abnormal dreams [Unknown]
  - Anxiety [Unknown]
  - Middle insomnia [Unknown]

NARRATIVE: CASE EVENT DATE: 202101
